FAERS Safety Report 21618746 (Version 1)
Quarter: 2022Q4

REPORT INFORMATION
  Report Type: Spontaneous
  Country: US (occurrence: US)
  Receive Date: 20221119
  Receipt Date: 20221119
  Transmission Date: 20230113
  Serious: No
  Sender: FDA-Public Use
  Company Number: US-COLLEGIUM PHARMACEUTICAL, INC.-2022BDSI0289

PATIENT

DRUGS (2)
  1. BELBUCA [Suspect]
     Active Substance: BUPRENORPHINE HYDROCHLORIDE
     Indication: Product used for unknown indication
     Route: 002
     Dates: start: 20220712
  2. PERCOCET [Concomitant]
     Active Substance: ACETAMINOPHEN\OXYCODONE HYDROCHLORIDE
     Indication: Product used for unknown indication
     Route: 065
     Dates: end: 202207

REACTIONS (3)
  - Drug ineffective [Not Recovered/Not Resolved]
  - Wrong technique in product usage process [Not Recovered/Not Resolved]
  - Product adhesion issue [Unknown]

NARRATIVE: CASE EVENT DATE: 20220701
